FAERS Safety Report 9324091 (Version 1)
Quarter: 2013Q2

REPORT INFORMATION
  Report Type: Spontaneous
  Country: US (occurrence: US)
  Receive Date: 20130603
  Receipt Date: 20130603
  Transmission Date: 20140414
  Serious: Yes (Other)
  Sender: FDA-Public Use
  Company Number: PHEH2013US011661

PATIENT
  Sex: Male

DRUGS (6)
  1. EXFORGE HCT [Suspect]
     Dosage: 1 DF, UNK (320 MG VALS, 10 MG AMLO, 25 MG HYDR)
  2. PRILOSEC [Concomitant]
     Dosage: UNK UKN, UNK
  3. AVODART [Concomitant]
     Dosage: UNK UKN, UNK
  4. PEPCID [Concomitant]
     Dosage: UNK UKN, UNK
  5. VITAMIN D [Concomitant]
     Dosage: UNK UKN, UNK
  6. FLAMADENE [Concomitant]
     Dosage: UNK UKN, UNK

REACTIONS (2)
  - Feeling abnormal [Unknown]
  - Blood pressure decreased [Unknown]
